FAERS Safety Report 9028106 (Version 1)
Quarter: 2013Q1

REPORT INFORMATION
  Report Type: Spontaneous
  Country: US (occurrence: None)
  Receive Date: 20130114
  Receipt Date: 20130114
  Transmission Date: 20140127
  Serious: Yes (Hospitalization)
  Sender: FDA-Public Use
  Company Number: None

PATIENT
  Age: 83 Year
  Sex: Male
  Weight: 85.9 kg

DRUGS (13)
  1. PEMETREXED [Suspect]
     Indication: NON-SMALL CELL LUNG CANCER
     Dosage: 150MG D2-19 OF 21D CYCLE PO
     Route: 042
     Dates: start: 20130103
  2. ERLOTINIB [Suspect]
     Indication: NON-SMALL CELL LUNG CANCER
     Dosage: D2-19 OF 21D CYCLE PO
     Route: 048
     Dates: start: 20130104
  3. FUROSEMIDE (LASIX) [Concomitant]
  4. MECLIZINE [Concomitant]
  5. WARFARIN [Concomitant]
  6. CYANOCOBALAMIN, VITAMIN B12, (VITAMIN B12) [Concomitant]
  7. DEXAMETHASONE [Concomitant]
  8. POTASSIUM CHLORIDE SR  (KLOR-CON) [Concomitant]
  9. CLINDAMYCIN [Concomitant]
  10. DEXAMETHASONE (DECADRON ORAL) [Concomitant]
  11. DICLOFENAC SODIUM [Concomitant]
  12. FOLIC ACID [Concomitant]
  13. CELECOXIB (CELEBREX) [Concomitant]

REACTIONS (3)
  - Urinary tract infection [None]
  - Asthenia [None]
  - Fatigue [None]
